FAERS Safety Report 6585345-1 (Version None)
Quarter: 2010Q1

REPORT INFORMATION
  Report Type: 
  Country: None (occurrence: None)
  Receive Date: 20100217
  Receipt Date: 20100209
  Transmission Date: 20100710
  Serious: Yes (Hospitalization)
  Sender: FDA-Public Use
  Company Number: GB-JNJFOC-20100205104

PATIENT
  Sex: Male

DRUGS (10)
  1. FENTANYL-100 [Suspect]
     Indication: DRUG USE FOR UNKNOWN INDICATION
     Route: 062
  2. MXL [Suspect]
     Indication: CANCER PAIN
     Route: 065
  3. IMIPRAMINE [Concomitant]
  4. INSULIN [Concomitant]
  5. LANSOPRAZOLE [Concomitant]
  6. NOVORAPID [Concomitant]
  7. OMEPRAZOLE [Concomitant]
  8. PROCTOSEDYL [Concomitant]
  9. LANREOTIDE [Concomitant]
  10. CYCLIZINE [Concomitant]

REACTIONS (2)
  - DRUG PRESCRIBING ERROR [None]
  - WEIGHT DECREASED [None]
